FAERS Safety Report 10088253 (Version 3)
Quarter: 2014Q3

REPORT INFORMATION
  Report Type: Spontaneous
  Country: US (occurrence: US)
  Receive Date: 20140421
  Receipt Date: 20140704
  Transmission Date: 20150326
  Serious: Yes (Hospitalization, Other)
  Sender: FDA-Public Use
  Company Number: US-ROCHE-1322922

PATIENT
  Age: 45 Year
  Sex: Female
  Weight: 69.01 kg

DRUGS (2)
  1. XOLAIR [Suspect]
     Active Substance: OMALIZUMAB
     Route: 065
     Dates: start: 20131212
  2. XOLAIR [Suspect]
     Active Substance: OMALIZUMAB
     Indication: ASTHMA
     Route: 058
     Dates: start: 20131111

REACTIONS (11)
  - Supraventricular tachycardia [Unknown]
  - Somnolence [Unknown]
  - Heart rate increased [Recovered/Resolved]
  - Pain [Unknown]
  - Loss of consciousness [Recovered/Resolved]
  - Alopecia [Recovering/Resolving]
  - Madarosis [Unknown]
  - Cardiac tamponade [Recovered/Resolved]
  - Arrhythmia [Recovered/Resolved]
  - Lethargy [Unknown]
  - Weight decreased [Unknown]

NARRATIVE: CASE EVENT DATE: 201403
